FAERS Safety Report 25766933 (Version 2)
Quarter: 2025Q3

REPORT INFORMATION
  Report Type: Spontaneous
  Country: CA (occurrence: CA)
  Receive Date: 20250905
  Receipt Date: 20250929
  Transmission Date: 20251020
  Serious: Yes (Other)
  Sender: PFIZER
  Company Number: CA-PFIZER INC-202500175007

PATIENT
  Age: 9 Year
  Sex: Male
  Weight: 30 kg

DRUGS (2)
  1. SOMATROPIN [Suspect]
     Active Substance: SOMATROPIN
     Indication: Growth hormone deficiency
     Dosage: 350 UG, 1X/DAY
     Route: 058
     Dates: start: 20230109
  2. SOMATROPIN [Suspect]
     Active Substance: SOMATROPIN
     Dosage: 400 UG, 1X/DAY
     Route: 058

REACTIONS (2)
  - Ear tube removal [Unknown]
  - Deafness [Unknown]
